FAERS Safety Report 6050404-9 (Version None)
Quarter: 2009Q1

REPORT INFORMATION
  Report Type: 
  Country: None (occurrence: None)
  Receive Date: 20090126
  Receipt Date: 20090119
  Transmission Date: 20090719
  Serious: Yes (Hospitalization)
  Sender: FDA-Public Use
  Company Number: IT-BAYER-200910599GPV

PATIENT
  Age: 70 Year
  Sex: Male
  Weight: 74 kg

DRUGS (12)
  1. SORAFENIB [Suspect]
     Indication: NON-SMALL CELL LUNG CANCER
     Route: 048
     Dates: start: 20081216
  2. GEMCITABINE [Suspect]
     Indication: NON-SMALL CELL LUNG CANCER
     Route: 042
     Dates: start: 20081216, end: 20081216
  3. GEMCITABINE [Suspect]
     Route: 042
     Dates: start: 20081223, end: 20081223
  4. LIMPIDEX [Concomitant]
     Indication: PROPHYLAXIS
     Route: 048
  5. OXYCONTIN [Concomitant]
     Indication: PAIN
     Route: 048
  6. ESKIM [Concomitant]
     Indication: HYPERTRIGLYCERIDAEMIA
     Route: 048
  7. AMARYL [Concomitant]
     Indication: DIABETES MELLITUS
     Route: 048
  8. ASPIRIN [Concomitant]
     Indication: ARRHYTHMIA
     Route: 048
  9. SELOKEN [Concomitant]
     Indication: ARRHYTHMIA
     Route: 048
  10. BIFRIZIDE (ZOFENAPRIL + HYDROCHLOROTHIAZIDE) [Concomitant]
     Indication: HYPERTENSION
     Route: 048
  11. HUMALOG [Concomitant]
     Indication: HYPERGLYCAEMIA
     Route: 058
     Dates: start: 20090101
  12. UNKNOWN DRUG [Concomitant]
     Indication: THROMBOSIS PROPHYLAXIS
     Route: 030
     Dates: start: 20081229

REACTIONS (4)
  - CARDIAC FAILURE [None]
  - DYSPNOEA [None]
  - NEUTROPENIA [None]
  - OEDEMA [None]
